FAERS Safety Report 23794327 (Version 1)
Quarter: 2024Q2

REPORT INFORMATION
  Report Type: Spontaneous
  Country: US (occurrence: None)
  Receive Date: 20240426
  Receipt Date: 20240426
  Transmission Date: 20240716
  Serious: Yes (Hospitalization)
  Sender: FDA-Public Use
  Company Number: None

PATIENT
  Age: 74 Year
  Sex: Male
  Weight: 131 kg

DRUGS (1)
  1. PHENTERMINE HYDROCHLORIDE\TOPIRAMATE [Suspect]
     Active Substance: PHENTERMINE HYDROCHLORIDE\TOPIRAMATE
     Indication: Weight decreased
     Dosage: 7.5/46 MG BID PO?
     Route: 048
     Dates: start: 20221223, end: 20230224

REACTIONS (2)
  - Epistaxis [None]
  - Therapy interrupted [None]

NARRATIVE: CASE EVENT DATE: 20230324
